FAERS Safety Report 19073904 (Version 1)
Quarter: 2021Q1

REPORT INFORMATION
  Report Type: Spontaneous
  Country: US (occurrence: US)
  Receive Date: 20210330
  Receipt Date: 20210330
  Transmission Date: 20210420
  Serious: Yes (Hospitalization)
  Sender: FDA-Public Use
  Company Number: None

PATIENT
  Age: 55 Year
  Sex: Male
  Weight: 115 kg

DRUGS (1)
  1. BAMLANIVIMAB 700MG/20ML, 50ML OF SALINE [Suspect]
     Active Substance: BAMLANIVIMAB
     Indication: COVID-19
     Route: 042
     Dates: start: 20210325, end: 20210325

REACTIONS (10)
  - Unresponsive to stimuli [None]
  - Syncope [None]
  - Nasopharyngitis [None]
  - Eye movement disorder [None]
  - Pain [None]
  - Blood pressure systolic decreased [None]
  - Hyperhidrosis [None]
  - Cold sweat [None]
  - Presyncope [None]
  - Dizziness [None]

NARRATIVE: CASE EVENT DATE: 20210325
